FAERS Safety Report 5676691-4 (Version None)
Quarter: 2008Q1

REPORT INFORMATION
  Report Type: 
  Country: None (occurrence: None)
  Receive Date: 20080318
  Receipt Date: 20080306
  Transmission Date: 20080703
  Serious: Yes (Hospitalization)
  Sender: FDA-Public Use
  Company Number: TCI2008A01212

PATIENT
  Age: 64 Year
  Sex: Male

DRUGS (4)
  1. ACTOS [Suspect]
     Indication: DIABETES MELLITUS
     Dosage: 15 MG (15 MG, 1 D); PER ORAL
     Route: 048
     Dates: start: 20061120, end: 20080213
  2. METFORMIN HYDROCHLORIDE [Concomitant]
  3. NOVOIN N (INSULIN HUMAN INJECTION, ISOPHANE) [Concomitant]
  4. NOVORAPID 300 (INSULIN ASPART) [Concomitant]

REACTIONS (4)
  - ABDOMINAL DISCOMFORT [None]
  - ALLERGIC BRONCHITIS [None]
  - PLEURAL EFFUSION [None]
  - PULMONARY OEDEMA [None]
